FAERS Safety Report 4453866-3 (Version None)
Quarter: 2004Q3

REPORT INFORMATION
  Report Type: 
  Country: None (occurrence: None)
  Receive Date: 20040920
  Receipt Date: 20040908
  Transmission Date: 20050211
  Serious: Yes (Hospitalization, Other)
  Sender: FDA-Public Use
  Company Number: JP-MERCK-0409USA01022

PATIENT
  Age: 58 Year
  Sex: Female

DRUGS (2)
  1. ZOCOR [Suspect]
     Indication: HYPERLIPIDAEMIA
     Route: 048
     Dates: end: 20030101
  2. WARFARIN SODIUM [Suspect]
     Route: 065

REACTIONS (6)
  - BLOOD GLUCOSE INCREASED [None]
  - CARDIAC FAILURE ACUTE [None]
  - DIZZINESS [None]
  - DRUG INTERACTION [None]
  - MITRAL VALVE INCOMPETENCE [None]
  - THROMBOSIS [None]
